FAERS Safety Report 8507967-0 (Version None)
Quarter: 2012Q2

REPORT INFORMATION
  Report Type: 
  Country: None (occurrence: None)
  Receive Date: 20120405
  Receipt Date: 20090924
  Transmission Date: 20120825
  Serious: Yes (Other)
  Sender: FDA-Public Use
  Company Number: PHEH2009US06571

PATIENT
  Sex: Female

DRUGS (12)
  1. DEPAKOTE (VALPROATE SEMISODIIUM) [Concomitant]
  2. FOLIC ACID [Concomitant]
  3. DEXLANSOPRAZOLE [Concomitant]
  4. KLONOPIN [Concomitant]
  5. PLAVIX [Concomitant]
  6. REQUIP [Concomitant]
  7. PROTONIX [Concomitant]
  8. AMBIEN [Concomitant]
  9. CALCIUM WITH VITAMIN D (CALCIUM PHOSPHATE, CALCIUM SODIUM LACTATE, ERG [Concomitant]
  10. SOMA [Concomitant]
  11. LORTAB [Concomitant]
  12. RECLAST [Suspect]
     Indication: OSTEOPOROSIS
     Dosage: INFUSION
     Dates: start: 20090601

REACTIONS (12)
  - INFLUENZA [None]
  - FATIGUE [None]
  - ABDOMINAL PAIN [None]
  - ARTHRITIS [None]
  - ABDOMINAL PAIN UPPER [None]
  - NERVOUSNESS [None]
  - ANXIETY [None]
  - HEADACHE [None]
  - MUSCLE SPASMS [None]
  - PAIN [None]
  - NAUSEA [None]
  - MYALGIA [None]
